FAERS Safety Report 4629932-6 (Version None)
Quarter: 2005Q2

REPORT INFORMATION
  Report Type: 
  Country: None (occurrence: None)
  Receive Date: 20050408
  Receipt Date: 20050329
  Transmission Date: 20051028
  Serious: Yes (Death)
  Sender: FDA-Public Use
  Company Number: FR-BRISTOL-MYERS SQUIBB COMPANY-12919478

PATIENT
  Age: 56 Year
  Sex: Female

DRUGS (3)
  1. ENDOXAN [Suspect]
     Indication: PRECURSOR B-LYMPHOBLASTIC LYMPHOMA
     Route: 042
     Dates: start: 20030601, end: 20030601
  2. VINCRISTINE [Suspect]
     Indication: PRECURSOR B-LYMPHOBLASTIC LYMPHOMA
     Route: 042
     Dates: start: 20030601, end: 20030601
  3. KIDROLASE [Suspect]
     Indication: PRECURSOR B-LYMPHOBLASTIC LYMPHOMA
     Route: 042
     Dates: start: 20030601, end: 20030601

REACTIONS (5)
  - AGRANULOCYTOSIS [None]
  - CLOSTRIDIAL INFECTION [None]
  - MULTI-ORGAN FAILURE [None]
  - PYREXIA [None]
  - SEPTIC SHOCK [None]
